FAERS Safety Report 5378475-3 (Version None)
Quarter: 2007Q3

REPORT INFORMATION
  Report Type: 
  Country: None (occurrence: None)
  Receive Date: 20070705
  Receipt Date: 20070627
  Transmission Date: 20080115
  Serious: Yes (Death, Hospitalization)
  Sender: FDA-Public Use
  Company Number: GB-AVENTIS-200713257GDDC

PATIENT
  Age: 77 Year
  Sex: Male

DRUGS (11)
  1. LANTUS [Suspect]
     Route: 058
     Dates: start: 20070216
  2. ACETAMINOPHEN [Concomitant]
  3. PRAVASTATIN [Concomitant]
  4. FINASTERIDE [Concomitant]
  5. CARVEDILOL [Concomitant]
  6. IRBESARTAN [Concomitant]
  7. ASASANTIN                          /00042901/ [Concomitant]
     Dosage: DOSE QUANTITY: 1
  8. FRUSEMIDE [Concomitant]
  9. ATORVASTATIN [Concomitant]
     Dates: end: 20070201
  10. VENLAFAXIN [Concomitant]
     Dates: start: 20070503
  11. DIAMICRON [Concomitant]
     Dates: start: 20070503

REACTIONS (5)
  - ANAEMIA [None]
  - ARRHYTHMIA [None]
  - CIRCULATORY COLLAPSE [None]
  - LOWER RESPIRATORY TRACT INFECTION [None]
  - URINARY TRACT INFECTION [None]
